FAERS Safety Report 11530042 (Version 2)
Quarter: 2016Q1

REPORT INFORMATION
  Report Type: Spontaneous
  Country: US (occurrence: US)
  Receive Date: 20150921
  Receipt Date: 20160128
  Transmission Date: 20160525
  Serious: No
  Sender: FDA-Public Use
  Company Number: US-009507513-1509USA005507

PATIENT
  Sex: Female
  Weight: 55.78 kg

DRUGS (1)
  1. NEXPLANON [Suspect]
     Active Substance: ETONOGESTREL
     Indication: CONTRACEPTION
     Dosage: 1 IMPLANT, 3 YEARS, IN LEFT ARM
     Route: 059
     Dates: start: 20150409

REACTIONS (9)
  - Vomiting [Unknown]
  - Hair colour changes [Unknown]
  - Nausea [Unknown]
  - Influenza like illness [Unknown]
  - Menorrhagia [Unknown]
  - Flatulence [Unknown]
  - Hypotrichosis [Unknown]
  - Vulvovaginal discomfort [Unknown]
  - Weight fluctuation [Unknown]

NARRATIVE: CASE EVENT DATE: 2015
